FAERS Safety Report 9152214 (Version 2)
Quarter: 2013Q1

REPORT INFORMATION
  Report Type: Report from Study
  Country: US (occurrence: US)
  Receive Date: 20130308
  Receipt Date: 20130321
  Transmission Date: 20140127
  Serious: No
  Sender: FDA-Public Use
  Company Number: US-VERTEX PHARMACEUTICALS INC.-AE-2012-006493

PATIENT
  Age: 7 Year
  Sex: Female

DRUGS (6)
  1. VX-770 [Suspect]
     Indication: CYSTIC FIBROSIS
     Dosage: 150 MG, BID
     Route: 048
     Dates: start: 20120402
  2. MIRALAX [Concomitant]
  3. VITAMINS [Concomitant]
  4. CREON [Concomitant]
  5. FLOVENT [Concomitant]
  6. ALBUTEROL [Concomitant]

REACTIONS (5)
  - Abdominal distension [Recovered/Resolved]
  - Weight increased [Not Recovered/Not Resolved]
  - Hyperhidrosis [Not Recovered/Not Resolved]
  - Skin odour abnormal [Not Recovered/Not Resolved]
  - Dyspnoea [Not Recovered/Not Resolved]
